FAERS Safety Report 19601533 (Version 1)
Quarter: 2021Q3

REPORT INFORMATION
  Report Type: Spontaneous
  Country: US (occurrence: US)
  Receive Date: 20210722
  Receipt Date: 20210722
  Transmission Date: 20211014
  Serious: No
  Sender: FDA-Public Use
  Company Number: US-BEH-2021134240

PATIENT
  Age: 33 Year
  Sex: Female

DRUGS (3)
  1. HIZENTRA [Suspect]
     Active Substance: HUMAN IMMUNOGLOBULIN G
     Indication: HYPOGAMMAGLOBULINAEMIA
     Dosage: 24 GRAM, QOW
     Route: 058
     Dates: start: 201908
  2. LEXAPRO [Concomitant]
     Active Substance: ESCITALOPRAM OXALATE
  3. PROZAC [Concomitant]
     Active Substance: FLUOXETINE HYDROCHLORIDE
     Dosage: UNK

REACTIONS (5)
  - General physical condition abnormal [Unknown]
  - Infusion related reaction [Unknown]
  - Skin irritation [Unknown]
  - Pruritus [Unknown]
  - Mental disorder [Unknown]

NARRATIVE: CASE EVENT DATE: 202107
